FAERS Safety Report 4649484-4 (Version None)
Quarter: 2005Q2

REPORT INFORMATION
  Report Type: 
  Country: None (occurrence: None)
  Receive Date: 20050331
  Receipt Date: 20041230
  Transmission Date: 20051028
  Serious: No
  Sender: FDA-Public Use
  Company Number: 05P-163-0285204-00

PATIENT
  Age: 50 Year
  Sex: Female
  Weight: 81.6475 kg

DRUGS (13)
  1. HUMIRA [Suspect]
     Indication: RHEUMATOID ARTHRITIS
     Dosage: 40 MG, EVERY 8 TO 10 DAYS, SUBCUTANEOUS
     Route: 058
     Dates: start: 20041001
  2. FUROSEMIDE [Concomitant]
  3. PREDNISONE TAB [Concomitant]
  4. SULFASALAZINE [Concomitant]
  5. PARACETAMOL [Concomitant]
  6. CETIRIZINE HCL [Concomitant]
  7. FLUTICASONE PROPIONATE [Concomitant]
  8. FAMOTIDINE [Concomitant]
  9. MULTI-VITAMINS [Concomitant]
  10. TOCOPHEROL CONCENTRATE CAP [Concomitant]
  11. FLAX SEED [Concomitant]
  12. ASCORBIC ACID [Concomitant]
  13. CALCIUM WITH D [Concomitant]

REACTIONS (1)
  - INJECTION SITE IRRITATION [None]
